FAERS Safety Report 12975610 (Version 5)
Quarter: 2017Q1

REPORT INFORMATION
  Report Type: Report from Study
  Country: CA (occurrence: CA)
  Receive Date: 20161125
  Receipt Date: 20170216
  Transmission Date: 20170428
  Serious: Yes (Other)
  Sender: FDA-Public Use
  Company Number: CA-JNJFOC-20160902821

PATIENT
  Age: 25 Year
  Sex: Female
  Weight: 114 kg

DRUGS (8)
  1. VENTOLIN [Concomitant]
     Active Substance: ALBUTEROL SULFATE
     Indication: ASTHMA
     Route: 045
  2. REMICADE [Suspect]
     Active Substance: INFLIXIMAB
     Indication: CROHN^S DISEASE
     Route: 042
     Dates: start: 20160920
  3. REMICADE [Suspect]
     Active Substance: INFLIXIMAB
     Indication: CROHN^S DISEASE
     Route: 042
     Dates: start: 20161116
  4. REMICADE [Suspect]
     Active Substance: INFLIXIMAB
     Indication: CROHN^S DISEASE
     Route: 042
     Dates: start: 20161214
  5. REMICADE [Suspect]
     Active Substance: INFLIXIMAB
     Indication: CROHN^S DISEASE
     Route: 042
     Dates: start: 20170208
  6. REMICADE [Suspect]
     Active Substance: INFLIXIMAB
     Indication: CROHN^S DISEASE
     Dosage: 10 MG/KG
     Route: 042
     Dates: start: 20100915
  7. REMICADE [Suspect]
     Active Substance: INFLIXIMAB
     Indication: CROHN^S DISEASE
     Route: 042
     Dates: start: 20170111
  8. REMICADE [Suspect]
     Active Substance: INFLIXIMAB
     Indication: CROHN^S DISEASE
     Route: 042
     Dates: start: 20161019

REACTIONS (17)
  - Infusion related reaction [Recovered/Resolved]
  - Lung disorder [Unknown]
  - Lip swelling [Not Recovered/Not Resolved]
  - Flank pain [Unknown]
  - Dyspnoea [Unknown]
  - Pneumonia [Recovered/Resolved]
  - Pain in extremity [Unknown]
  - Arthralgia [Recovering/Resolving]
  - Pneumothorax [Recovering/Resolving]
  - Respiratory tract infection [Unknown]
  - Product use issue [Unknown]
  - General physical health deterioration [Recovering/Resolving]
  - Oxygen saturation decreased [Unknown]
  - Drug effect decreased [Recovering/Resolving]
  - Poor venous access [Unknown]
  - Off label use [Unknown]
  - Nausea [Recovered/Resolved]

NARRATIVE: CASE EVENT DATE: 20100915
